FAERS Safety Report 6411834-6 (Version None)
Quarter: 2009Q4

REPORT INFORMATION
  Report Type: 
  Country: None (occurrence: None)
  Receive Date: 20091020
  Receipt Date: 20091010
  Transmission Date: 20100525
  Serious: Yes (Hospitalization)
  Sender: FDA-Public Use
  Company Number: 545626

PATIENT
  Age: 68 Year
  Sex: Male

DRUGS (1)
  1. ANACIN REGULAR STRENGTH 300 [Suspect]
     Indication: HEADACHE
     Dosage: 2 TABS PO Q2HX5 DOSES
     Dates: start: 20091009, end: 20091010

REACTIONS (4)
  - BLOOD PRESSURE DECREASED [None]
  - DIZZINESS [None]
  - INCORRECT DOSE ADMINISTERED [None]
  - LOSS OF CONSCIOUSNESS [None]
